FAERS Safety Report 19444547 (Version 3)
Quarter: 2021Q3

REPORT INFORMATION
  Report Type: Spontaneous
  Country: JP (occurrence: JP)
  Receive Date: 20210621
  Receipt Date: 20210824
  Transmission Date: 20211014
  Serious: Yes (Hospitalization, Other)
  Sender: FDA-Public Use
  Company Number: JP-GILEAD-2021-0536120

PATIENT
  Age: 51 Year
  Sex: Female

DRUGS (2)
  1. LIVACT [ISOLEUCINE;LEUCINE;VALINE] [Concomitant]
     Indication: HEPATITIS B
     Dosage: 1 SACHET THREE TIMES A DAY
     Route: 065
  2. VIREAD [Suspect]
     Active Substance: TENOFOVIR DISOPROXIL FUMARATE
     Indication: HEPATITIS B
     Dosage: 300 MG, QD
     Route: 065
     Dates: start: 201806, end: 202010

REACTIONS (3)
  - COVID-19 [Recovered/Resolved]
  - Hypoxia [Recovered/Resolved]
  - Hypophosphataemia [Recovered/Resolved]
